FAERS Safety Report 11622679 (Version 1)
Quarter: 2015Q4

REPORT INFORMATION
  Report Type: Spontaneous
  Country: US (occurrence: US)
  Receive Date: 20151013
  Receipt Date: 20151013
  Transmission Date: 20160304
  Serious: No
  Sender: FDA-Public Use
  Company Number: US-JNJFOC-20150404546

PATIENT
  Age: 56 Year
  Sex: Female
  Weight: 74.84 kg

DRUGS (2)
  1. TYLENOL EXTRA STRENGTH [Suspect]
     Active Substance: ACETAMINOPHEN
     Indication: HEADACHE
     Route: 048
     Dates: start: 20150403, end: 20150403
  2. TYLENOL EXTRA STRENGTH [Suspect]
     Active Substance: ACETAMINOPHEN
     Indication: ARTHRALGIA
     Route: 048
     Dates: start: 20150403, end: 20150403

REACTIONS (3)
  - Inappropriate schedule of drug administration [Unknown]
  - Therapeutic response unexpected [Unknown]
  - Drug ineffective [Unknown]

NARRATIVE: CASE EVENT DATE: 20150403
